FAERS Safety Report 19189850 (Version 1)
Quarter: 2021Q2

REPORT INFORMATION
  Report Type: Spontaneous
  Country: US (occurrence: US)
  Receive Date: 20210428
  Receipt Date: 20210428
  Transmission Date: 20210717
  Serious: Yes (Other)
  Sender: FDA-Public Use
  Company Number: None

PATIENT
  Age: 33 Year
  Sex: Female
  Weight: 72 kg

DRUGS (2)
  1. PRISTIQ EXTENDED?RELEASE [Suspect]
     Active Substance: DESVENLAFAXINE SUCCINATE
     Indication: GENERALISED ANXIETY DISORDER
     Route: 048
     Dates: start: 20210416, end: 20210416
  2. LEVOTHYROXINE. [Concomitant]
     Active Substance: LEVOTHYROXINE

REACTIONS (8)
  - Nausea [None]
  - Ventricular extrasystoles [None]
  - Supraventricular extrasystoles [None]
  - Arrhythmia [None]
  - Dizziness [None]
  - Insomnia [None]
  - Chest pain [None]
  - Bradycardia [None]

NARRATIVE: CASE EVENT DATE: 20210416
